FAERS Safety Report 21143022 (Version 1)
Quarter: 2022Q3

REPORT INFORMATION
  Report Type: Spontaneous
  Country: JP (occurrence: JP)
  Receive Date: 20220728
  Receipt Date: 20220728
  Transmission Date: 20221027
  Serious: Yes (Hospitalization, Other)
  Sender: FDA-Public Use
  Company Number: JP-CELGENE-JPN-2015054874

PATIENT
  Age: 73 Year
  Sex: Female
  Weight: 47 kg

DRUGS (4)
  1. ABRAXANE [Suspect]
     Active Substance: PACLITAXEL
     Indication: Breast cancer
     Route: 041
     Dates: start: 201211, end: 201308
  2. Prostaglandin preparation [Concomitant]
     Indication: Lumbar spinal stenosis
     Route: 065
  3. LYRICA [Concomitant]
     Active Substance: PREGABALIN
     Indication: Lumbar spinal stenosis
     Route: 065
  4. ACETAMINOPHEN [Concomitant]
     Active Substance: ACETAMINOPHEN
     Indication: Product used for unknown indication
     Route: 065

REACTIONS (3)
  - Cholangitis sclerosing [Recovering/Resolving]
  - Alopecia [Unknown]
  - Arthralgia [Unknown]
